FAERS Safety Report 25677162 (Version 1)
Quarter: 2025Q3

REPORT INFORMATION
  Report Type: Spontaneous
  Country: US (occurrence: US)
  Receive Date: 20250813
  Receipt Date: 20250813
  Transmission Date: 20251021
  Serious: No
  Sender: SANOFI AVENTIS
  Company Number: US-SA-2025SA236981

PATIENT
  Sex: Female
  Weight: 78.64 kg

DRUGS (2)
  1. DUPIXENT [Suspect]
     Active Substance: DUPILUMAB
     Indication: Neurodermatitis
     Dosage: 300 MG, QOW
     Route: 058
  2. HYDROXYZINE PAMOATE [Concomitant]
     Active Substance: HYDROXYZINE PAMOATE

REACTIONS (3)
  - Arthropod bite [Unknown]
  - Erythema [Unknown]
  - Pruritus [Unknown]
